FAERS Safety Report 9651078 (Version 1)
Quarter: 2013Q4

REPORT INFORMATION
  Report Type: Report from Study
  Country: NL (occurrence: NL)
  Receive Date: 20131029
  Receipt Date: 20131029
  Transmission Date: 20140711
  Serious: Yes (Other)
  Sender: FDA-Public Use
  Company Number: NL-PFIZER INC-2013303001

PATIENT
  Age: 71 Year
  Sex: Female

DRUGS (5)
  1. SERTRALINE [Suspect]
     Indication: ANTIDEPRESSANT THERAPY
     Dosage: 100 MG, DAILY
  2. HALOPERIDOL [Suspect]
     Dosage: UNK
  3. OXAZEPAM [Suspect]
     Dosage: UNK
  4. ACETYLSALICYLIC ACID [Suspect]
     Dosage: UNK
  5. HYDROCHLOROTHIAZIDE [Suspect]
     Dosage: UNK

REACTIONS (2)
  - Delirium [Unknown]
  - Hyponatraemia [Unknown]
